FAERS Safety Report 13327851 (Version 1)
Quarter: 2017Q1

REPORT INFORMATION
  Report Type: Spontaneous
  Country: US (occurrence: US)
  Receive Date: 20170313
  Receipt Date: 20170313
  Transmission Date: 20170428
  Serious: No
  Sender: FDA-Public Use
  Company Number: US-JNJFOC-20161216580

PATIENT
  Sex: Male
  Weight: 97.52 kg

DRUGS (3)
  1. MENS ROGAINE EXTRA STRENGTH [Suspect]
     Active Substance: MINOXIDIL
     Indication: ALOPECIA
     Dosage: FOR SECOND WEEK AND A HALF
     Route: 061
     Dates: end: 20161210
  2. MENS ROGAINE EXTRA STRENGTH [Suspect]
     Active Substance: MINOXIDIL
     Indication: ALOPECIA
     Dosage: 1/2 CAPFUL, USED FOR FIRST WEEK AND A HALF
     Route: 061
     Dates: start: 20161116
  3. IBUPROFEN. [Concomitant]
     Active Substance: IBUPROFEN
     Indication: PAIN OF SKIN
     Dosage: AS NEEDED
     Route: 065

REACTIONS (2)
  - Pain of skin [Recovering/Resolving]
  - Dandruff [Recovering/Resolving]

NARRATIVE: CASE EVENT DATE: 2016
